FAERS Safety Report 11663308 (Version 1)
Quarter: 2015Q4

REPORT INFORMATION
  Report Type: Spontaneous
  Country: FR (occurrence: FR)
  Receive Date: 20151027
  Receipt Date: 20151027
  Transmission Date: 20160304
  Serious: Yes (Hospitalization)
  Sender: FDA-Public Use
  Company Number: FR-009507513-1510FRA011503

PATIENT
  Age: 26 Year
  Sex: Female

DRUGS (6)
  1. JANUVIA [Suspect]
     Active Substance: SITAGLIPTIN PHOSPHATE
     Indication: DIABETES MELLITUS
     Dosage: 100 MG, QD
     Route: 048
     Dates: start: 20151001, end: 20151009
  2. SPASFON [Suspect]
     Active Substance: PHLOROGLUCINOL
     Indication: PAIN
     Dosage: 2 TABLETS TID IF PAIN
     Route: 048
     Dates: start: 20151009, end: 20151010
  3. LEVEMIR [Concomitant]
     Active Substance: INSULIN DETEMIR
     Indication: DIABETES MELLITUS
     Dosage: UNK
     Dates: start: 20150929, end: 20151001
  4. GALVUS [Concomitant]
     Active Substance: VILDAGLIPTIN
     Indication: DIABETES MELLITUS
     Dosage: UNK
     Dates: start: 20150929, end: 20151001
  5. SOLUPRED [Concomitant]
     Active Substance: PREDNISOLONE
     Dosage: UNK
     Dates: start: 20150930, end: 20151006
  6. HUMIRA [Suspect]
     Active Substance: ADALIMUMAB
     Indication: PROCTITIS HAEMORRHAGIC
     Dosage: TOTAL DAILY DOSE 160 MG
     Route: 058
     Dates: start: 20150929, end: 20150929

REACTIONS (1)
  - Thrombocytopenia [Recovering/Resolving]

NARRATIVE: CASE EVENT DATE: 20151009
